FAERS Safety Report 16313698 (Version 3)
Quarter: 2019Q3

REPORT INFORMATION
  Report Type: Spontaneous
  Country: US (occurrence: US)
  Receive Date: 20190515
  Receipt Date: 20190709
  Transmission Date: 20191004
  Serious: No
  Sender: FDA-Public Use
  Company Number: US-PFIZER INC-2019200462

PATIENT
  Age: 54 Year
  Sex: Female

DRUGS (4)
  1. CALCIUM [Concomitant]
     Active Substance: CALCIUM
     Dosage: UNK
  2. EFFEXOR XR [Suspect]
     Active Substance: VENLAFAXINE HYDROCHLORIDE
     Dosage: 0.5 DF, UNK (CUTTING HER 75MG DOSE IN HALF )
  3. EFFEXOR XR [Suspect]
     Active Substance: VENLAFAXINE HYDROCHLORIDE
     Dosage: 75 MG, 1X/DAY,(Q AM)
     Dates: start: 2016
  4. EFFEXOR XR [Suspect]
     Active Substance: VENLAFAXINE HYDROCHLORIDE
     Indication: DEPRESSION
     Dosage: 75 MG, UNK

REACTIONS (7)
  - Intentional product use issue [Unknown]
  - Hot flush [Recovered/Resolved]
  - Pruritus [Unknown]
  - Influenza [Recovered/Resolved]
  - Malaise [Recovered/Resolved]
  - Wrong technique in product usage process [Unknown]
  - Product dose omission [Unknown]

NARRATIVE: CASE EVENT DATE: 20190511
